FAERS Safety Report 25198660 (Version 1)
Quarter: 2025Q2

REPORT INFORMATION
  Report Type: Report from Study
  Country: US (occurrence: US)
  Receive Date: 20250415
  Receipt Date: 20250415
  Transmission Date: 20250717
  Serious: No
  Sender: ACADIA PHARMACEUTICALS
  Company Number: US-ACADIA PHARMACEUTICALS INC.-ACA-2025-PIM-004180

PATIENT
  Age: 63 Year
  Sex: Male

DRUGS (14)
  1. NUPLAZID [Suspect]
     Active Substance: PIMAVANSERIN TARTRATE
     Indication: Parkinson^s disease
     Dosage: 34 MILLIGRAM, QD
     Route: 048
     Dates: start: 20220125
  2. ADDERALL [Concomitant]
     Active Substance: AMPHETAMINE ASPARTATE\AMPHETAMINE SULFATE\DEXTROAMPHETAMINE SACCHARATE\DEXTROAMPHETAMINE SULFATE
  3. CLONAZEPAM [Concomitant]
     Active Substance: CLONAZEPAM
  4. DONEPEZIL [Concomitant]
     Active Substance: DONEPEZIL
  5. LAMOTRIGINE [Concomitant]
     Active Substance: LAMOTRIGINE
  6. MAGNESIUM [Concomitant]
     Active Substance: MAGNESIUM
  7. MELATONIN [Concomitant]
     Active Substance: MELATONIN
  8. POTASSIUM [Concomitant]
     Active Substance: POTASSIUM
  9. PROBIOTIC ACIDOPHILUS [LACTOBACILLUS ACIDOPHILUS] [Concomitant]
  10. PROPRANOLOL [Concomitant]
     Active Substance: PROPRANOLOL HYDROCHLORIDE
  11. SERTRALINE [Concomitant]
     Active Substance: SERTRALINE HYDROCHLORIDE
  12. SUCRALFATE [Concomitant]
     Active Substance: SUCRALFATE
  13. SULFASALAZINE [Concomitant]
     Active Substance: SULFASALAZINE
  14. CYCLOBENZAPRINE [Concomitant]
     Active Substance: CYCLOBENZAPRINE

REACTIONS (5)
  - Cluster headache [Recovered/Resolved]
  - Muscle tightness [Not Recovered/Not Resolved]
  - Tremor [Not Recovered/Not Resolved]
  - Muscle spasms [Not Recovered/Not Resolved]
  - Movement disorder [Not Recovered/Not Resolved]

NARRATIVE: CASE EVENT DATE: 20250101
